FAERS Safety Report 20859647 (Version 2)
Quarter: 2022Q2

REPORT INFORMATION
  Report Type: Spontaneous
  Country: US (occurrence: None)
  Receive Date: 20220523
  Receipt Date: 20220530
  Transmission Date: 20220721
  Serious: No
  Sender: FDA-Public Use
  Company Number: 2022A167656

PATIENT
  Age: 18433 Day
  Weight: 62.1 kg

DRUGS (2)
  1. TEZSPIRE [Suspect]
     Active Substance: TEZEPELUMAB-EKKO
     Indication: Asthma
     Dosage: 210MG/1.9
     Route: 058
     Dates: start: 20220412, end: 20220412
  2. TRIAMCINOLON [Concomitant]

REACTIONS (3)
  - Mobility decreased [Recovering/Resolving]
  - Asthenia [Unknown]
  - Arthralgia [Recovering/Resolving]

NARRATIVE: CASE EVENT DATE: 20220413
